FAERS Safety Report 8575636 (Version 4)
Quarter: 2016Q3

REPORT INFORMATION
  Report Type: Spontaneous
  Country: US (occurrence: US)
  Receive Date: 20120523
  Receipt Date: 20160906
  Transmission Date: 20161109
  Serious: Yes (Other)
  Sender: FDA-Public Use
  Company Number: US-ASTRAZENECA-2012SE30689

PATIENT
  Age: 17684 Day
  Sex: Female
  Weight: 131.5 kg

DRUGS (8)
  1. SYMBICORT [Suspect]
     Active Substance: BUDESONIDE\FORMOTEROL FUMARATE DIHYDRATE
     Indication: ASTHMA
     Dosage: 2-4 PUFFS AS NEEDED
     Route: 055
  2. DIOVAN [Concomitant]
     Active Substance: VALSARTAN
  3. SYMBICORT [Suspect]
     Active Substance: BUDESONIDE\FORMOTEROL FUMARATE DIHYDRATE
     Indication: ASTHMA
     Dosage: 160/4.5 MCG UNKNOWN FREQUENCY
     Route: 055
  4. SYMBICORT [Suspect]
     Active Substance: BUDESONIDE\FORMOTEROL FUMARATE DIHYDRATE
     Indication: ASTHMA
     Dosage: 160/4.5 MCG 1-2 PUFFS EVERY 6-8 HOURS AS NEEDED
     Route: 055
  5. SINGULAIR [Concomitant]
     Active Substance: MONTELUKAST SODIUM
  6. LISINOPRIL. [Suspect]
     Active Substance: LISINOPRIL
     Indication: HYPERTENSION
     Route: 048
  7. SYMBICORT [Suspect]
     Active Substance: BUDESONIDE\FORMOTEROL FUMARATE DIHYDRATE
     Indication: ASTHMA
     Dosage: 160/4.5 MCG, TWO PUFFS TWICE A DAY
     Route: 055
  8. PAIN PILLS FOR KNEES [Concomitant]
     Indication: ARTHROPATHY

REACTIONS (9)
  - Asthma [Not Recovered/Not Resolved]
  - Productive cough [Not Recovered/Not Resolved]
  - Fall [Unknown]
  - Cough [Not Recovered/Not Resolved]
  - Nasopharyngitis [Not Recovered/Not Resolved]
  - Malaise [Not Recovered/Not Resolved]
  - Off label use [Unknown]
  - Drug dose omission [Not Recovered/Not Resolved]
  - Musculoskeletal discomfort [Unknown]

NARRATIVE: CASE EVENT DATE: 20160810
